FAERS Safety Report 23400463 (Version 2)
Quarter: 2024Q1

REPORT INFORMATION
  Report Type: Spontaneous
  Country: GR (occurrence: GR)
  Receive Date: 20240115
  Receipt Date: 20240123
  Transmission Date: 20240409
  Serious: Yes (Hospitalization)
  Sender: FDA-Public Use
  Company Number: GR-BoehringerIngelheim-2024-BI-000963

PATIENT
  Age: 78 Year
  Sex: Male

DRUGS (1)
  1. EMPAGLIFLOZIN [Suspect]
     Active Substance: EMPAGLIFLOZIN
     Indication: Product used for unknown indication

REACTIONS (12)
  - Abdominal discomfort [Unknown]
  - Hypotension [Unknown]
  - Troponin increased [Unknown]
  - Inflammatory marker increased [Unknown]
  - Metabolic acidosis [Unknown]
  - Anion gap increased [Unknown]
  - Ventricular hypokinesia [Unknown]
  - SARS-CoV-2 test positive [Unknown]
  - Haemodynamic instability [Unknown]
  - Blood ketone body increased [Unknown]
  - Urine ketone body present [Unknown]
  - Euglycaemic diabetic ketoacidosis [Unknown]
